FAERS Safety Report 5265957-8 (Version None)
Quarter: 2007Q1

REPORT INFORMATION
  Report Type: 
  Country: None (occurrence: None)
  Receive Date: 20070313
  Receipt Date: 20070313
  Transmission Date: 20070707
  Serious: Yes (Other)
  Sender: FDA-Public Use
  Company Number: None

PATIENT
  Sex: Female
  Weight: 81.6475 kg

DRUGS (3)
  1. GEODON [Suspect]
     Indication: DEPRESSION
     Dates: start: 20061101, end: 20070305
  2. GEODON [Suspect]
     Indication: MANIA
     Dates: start: 20061101, end: 20070305
  3. HALDOL [Suspect]

REACTIONS (12)
  - BIPOLAR I DISORDER [None]
  - DRUG HYPERSENSITIVITY [None]
  - DRUG INTERACTION [None]
  - FATIGUE [None]
  - HYPOAESTHESIA [None]
  - MALAISE [None]
  - MUSCLE SPASMS [None]
  - MUSCULOSKELETAL STIFFNESS [None]
  - OVERDOSE [None]
  - SEDATION [None]
  - SLUGGISHNESS [None]
  - TREMOR [None]
